FAERS Safety Report 9820007 (Version 2)
Quarter: 2014Q1

REPORT INFORMATION
  Report Type: Spontaneous
  Country: US (occurrence: US)
  Receive Date: 20140116
  Receipt Date: 20140129
  Transmission Date: 20141002
  Serious: No
  Sender: FDA-Public Use
  Company Number: US-TEVA-455880USA

PATIENT
  Age: 24 Year
  Sex: Male
  Weight: 69.92 kg

DRUGS (3)
  1. NUVIGIL [Suspect]
     Indication: FATIGUE
     Dates: start: 201305
  2. NUVIGIL [Suspect]
     Indication: SLEEP APNOEA SYNDROME
  3. NUVIGIL [Suspect]
     Indication: NARCOLEPSY

REACTIONS (8)
  - Headache [Recovered/Resolved]
  - Anxiety [Recovered/Resolved]
  - Off label use [Unknown]
  - Palpitations [Unknown]
  - Hyperhidrosis [Unknown]
  - Hypersensitivity [Unknown]
  - Decreased appetite [Unknown]
  - Feeling abnormal [Unknown]
